FAERS Safety Report 4665012-1 (Version None)
Quarter: 2005Q2

REPORT INFORMATION
  Report Type: 
  Country: None (occurrence: None)
  Receive Date: 20050517
  Receipt Date: 20050429
  Transmission Date: 20051028
  Serious: Yes (Hospitalization, Other)
  Sender: FDA-Public Use
  Company Number: GBS050517272

PATIENT
  Age: 58 Year
  Sex: Female

DRUGS (9)
  1. DULOXETINE HYDROCHLORIDE [Suspect]
     Indication: STRESS INCONTINENCE
     Dosage: 40 MG/2 DAY
     Dates: start: 20041005
  2. MOVICOL [Concomitant]
  3. DICLOFENAC SODIUM [Concomitant]
  4. CO-DYRAMOL [Concomitant]
  5. CINNARIZINE [Concomitant]
  6. PROCHLORPERAZINE [Concomitant]
  7. BETAHISTINE [Concomitant]
  8. SIBUTRAMINE [Concomitant]
  9. ESTRADERM [Concomitant]

REACTIONS (1)
  - ENDOMETRIAL CANCER RECURRENT [None]
